FAERS Safety Report 13259059 (Version 4)
Quarter: 2017Q4

REPORT INFORMATION
  Report Type: Report from Study
  Country: JP (occurrence: JP)
  Receive Date: 20170222
  Receipt Date: 20171220
  Transmission Date: 20180320
  Serious: Yes (Other)
  Sender: FDA-Public Use
  Company Number: JP-ROCHE-1895395

PATIENT
  Age: 68 Year
  Sex: Male
  Weight: 66 kg

DRUGS (43)
  1. POLARAMINE [Concomitant]
     Active Substance: DEXCHLORPHENIRAMINE MALEATE
     Dosage: 01/MAR/2016, 25/MAR/2016, 14/APR/2016
     Route: 042
     Dates: start: 20160414, end: 20160414
  2. WARFARIN [Concomitant]
     Active Substance: WARFARIN
     Route: 048
     Dates: start: 20160328, end: 20160413
  3. WARFARIN [Concomitant]
     Active Substance: WARFARIN
     Route: 048
     Dates: start: 20160707, end: 20160818
  4. METHYLPREDNISOLONE. [Suspect]
     Active Substance: METHYLPREDNISOLONE
     Indication: NEPHROTIC SYNDROME
     Dosage: (4-60 MGOR)
     Route: 048
     Dates: start: 20160203
  5. POLARAMINE [Concomitant]
     Active Substance: DEXCHLORPHENIRAMINE MALEATE
     Dosage: 01/MAR/2016, 25/MAR/2016, 14/APR/2016
     Route: 042
     Dates: start: 20160216, end: 20160216
  6. POLARAMINE [Concomitant]
     Active Substance: DEXCHLORPHENIRAMINE MALEATE
     Dosage: 01/MAR/2016, 25/MAR/2016, 14/APR/2016
     Route: 042
     Dates: start: 20160301, end: 20160301
  7. POLARAMINE [Concomitant]
     Active Substance: DEXCHLORPHENIRAMINE MALEATE
     Dosage: 01/MAR/2016, 25/MAR/2016, 14/APR/2016
     Route: 042
     Dates: start: 20160325, end: 20160325
  8. PRAVASTATIN NATRIUM [Concomitant]
     Indication: DYSLIPIDAEMIA
     Route: 048
     Dates: start: 20150829, end: 20161129
  9. AMLODIPINE BESILATE [Concomitant]
     Active Substance: AMLODIPINE BESYLATE
     Dosage: 5 MG, 11/MAR/2016, 7.5 MG, 26MAY/2016
     Route: 048
     Dates: start: 20160311, end: 20160525
  10. AMLODIPINE BESILATE [Concomitant]
     Active Substance: AMLODIPINE BESYLATE
     Dosage: 5 MG, 11/MAR/2016, 7.5 MG, 26MAY/2016
     Route: 048
     Dates: start: 20161117
  11. SENNOSIDE [Concomitant]
     Active Substance: SENNOSIDES
     Indication: CONSTIPATION
     Dosage: 36 MG, 29/FEB/2016
     Route: 048
     Dates: start: 20160207, end: 20160221
  12. SENNOSIDE [Concomitant]
     Active Substance: SENNOSIDES
     Dosage: 36 MG, 29/FEB/2016
     Route: 048
     Dates: start: 20160229, end: 20160313
  13. DIART [Concomitant]
     Active Substance: AZOSEMIDE
     Indication: OEDEMA DUE TO RENAL DISEASE
     Route: 048
     Dates: start: 20160225, end: 20160307
  14. WARFARIN [Concomitant]
     Active Substance: WARFARIN
     Route: 048
     Dates: start: 20160414, end: 20160420
  15. LECICARBON (JAPAN) [Concomitant]
     Indication: CONSTIPATION
     Route: 054
     Dates: start: 20160305, end: 20160328
  16. MYCOPHENOLATE MOFETIL. [Suspect]
     Active Substance: MYCOPHENOLATE MOFETIL
     Route: 048
     Dates: start: 20160609, end: 20160706
  17. MYCOPHENOLATE MOFETIL. [Suspect]
     Active Substance: MYCOPHENOLATE MOFETIL
     Route: 048
     Dates: start: 20160901
  18. TEPRENONE [Concomitant]
     Active Substance: TEPRENONE
     Indication: CHRONIC GASTRITIS
     Route: 048
  19. AMLODIPINE BESILATE [Concomitant]
     Active Substance: AMLODIPINE BESYLATE
     Indication: HYPERTENSION
     Dosage: 5 MG, 11/MAR/2016, 7.5 MG, 26MAY/2016
     Route: 048
     Dates: start: 20160310
  20. ALENDRONATE [Concomitant]
     Active Substance: ALENDRONATE SODIUM
     Indication: OSTEOPOROSIS
     Route: 048
     Dates: start: 20160204, end: 20160331
  21. RITUXIMAB. [Suspect]
     Active Substance: RITUXIMAB
     Indication: NEPHROTIC SYNDROME
     Dosage: 10 MG/ML
     Route: 042
     Dates: start: 20160216, end: 20160216
  22. RITUXIMAB. [Suspect]
     Active Substance: RITUXIMAB
     Dosage: 10 MG/ML
     Route: 042
     Dates: start: 20160325, end: 20160325
  23. MYCOPHENOLATE MOFETIL. [Suspect]
     Active Substance: MYCOPHENOLATE MOFETIL
     Route: 048
     Dates: start: 20160707, end: 20160720
  24. MYCOPHENOLATE MOFETIL. [Suspect]
     Active Substance: MYCOPHENOLATE MOFETIL
     Route: 048
     Dates: start: 20160721, end: 20160831
  25. WARFARIN [Concomitant]
     Active Substance: WARFARIN
     Indication: DEEP VEIN THROMBOSIS
     Route: 048
     Dates: start: 20160222, end: 20160223
  26. WARFARIN [Concomitant]
     Active Substance: WARFARIN
     Route: 048
     Dates: start: 20160224, end: 20160229
  27. WARFARIN [Concomitant]
     Active Substance: WARFARIN
     Route: 048
     Dates: start: 20160303, end: 20160310
  28. WARFARIN [Concomitant]
     Active Substance: WARFARIN
     Route: 048
     Dates: start: 20160311, end: 20160327
  29. MYCOPHENOLATE MOFETIL. [Suspect]
     Active Substance: MYCOPHENOLATE MOFETIL
     Indication: RENAL TRANSPLANT
     Route: 048
     Dates: start: 20160608
  30. THYRADIN [Concomitant]
     Active Substance: LEVOTHYROXINE
     Indication: HYPOTHYROIDISM
     Route: 048
     Dates: start: 20170201
  31. TRAZENTA [Concomitant]
     Active Substance: LINAGLIPTIN
     Indication: DIABETES MELLITUS
     Route: 048
     Dates: start: 20160131
  32. GLUFAST [Concomitant]
     Active Substance: MITIGLINIDE
     Indication: DIABETES MELLITUS
     Route: 048
     Dates: start: 20160307
  33. RITUXIMAB. [Suspect]
     Active Substance: RITUXIMAB
     Dosage: 10 MG/ML
     Route: 042
     Dates: start: 20160414, end: 20160414
  34. CICLOSPORIN [Suspect]
     Active Substance: CYCLOSPORINE
     Indication: NEPHROTIC SYNDROME
     Dosage: (50-190 MG)
     Route: 048
     Dates: start: 20160203
  35. AMLODIPINE BESILATE [Concomitant]
     Active Substance: AMLODIPINE BESYLATE
     Dosage: 5 MG, 11/MAR/2016, 7.5 MG, 26MAY/2016
     Route: 048
     Dates: start: 20160526, end: 20161116
  36. DAIPHEN [Concomitant]
     Active Substance: SULFAMETHOXAZOLE\TRIMETHOPRIM
     Indication: ANTIFUNGAL PROPHYLAXIS
     Route: 048
  37. HEPARIN SODIUM. [Concomitant]
     Active Substance: HEPARIN SODIUM
     Indication: DEEP VEIN THROMBOSIS
     Route: 042
     Dates: start: 20160222
  38. SODIUM PICOSULFATE [Concomitant]
     Active Substance: SODIUM PICOSULFATE
     Indication: CONSTIPATION
     Dosage: 10 DROPS/DAY
     Route: 048
     Dates: start: 20160223, end: 20160804
  39. RITUXIMAB. [Suspect]
     Active Substance: RITUXIMAB
     Dosage: 10 MG/ML
     Route: 042
     Dates: start: 20160301, end: 20160301
  40. WARFARIN [Concomitant]
     Active Substance: WARFARIN
     Route: 048
     Dates: start: 20160421, end: 20160706
  41. FUROSEMIDE. [Concomitant]
     Active Substance: FUROSEMIDE
     Indication: OEDEMA DUE TO RENAL DISEASE
     Route: 048
     Dates: start: 20160222, end: 20160225
  42. DIART [Concomitant]
     Active Substance: AZOSEMIDE
     Route: 048
     Dates: start: 20160308, end: 20160608
  43. DIART [Concomitant]
     Active Substance: AZOSEMIDE
     Route: 048
     Dates: start: 20160609

REACTIONS (6)
  - Herpes simplex [Recovering/Resolving]
  - Cytomegalovirus infection [Recovered/Resolved]
  - Hypokalaemia [Recovered/Resolved]
  - Gastrooesophageal reflux disease [Recovered/Resolved]
  - Hypokalaemia [Not Recovered/Not Resolved]
  - Periodontitis [Recovering/Resolving]

NARRATIVE: CASE EVENT DATE: 20160218
